FAERS Safety Report 9162681 (Version 1)
Quarter: 2013Q1

REPORT INFORMATION
  Report Type: Spontaneous
  Country: US (occurrence: US)
  Receive Date: 20130314
  Receipt Date: 20130314
  Transmission Date: 20140127
  Serious: Yes (Other)
  Sender: FDA-Public Use
  Company Number: US-BRISTOL-MYERS SQUIBB COMPANY-17449059

PATIENT
  Sex: Male
  Weight: 102.04 kg

DRUGS (3)
  1. ABATACEPT SUBQ INJECTION 125MG/ML [Suspect]
     Indication: RHEUMATOID ARTHRITIS
     Dosage: LAST INJ: 26FEB2013
  2. ENBREL [Concomitant]
  3. HUMIRA [Concomitant]

REACTIONS (2)
  - Arrhythmia [Unknown]
  - Hepatitis [Unknown]
